FAERS Safety Report 19230884 (Version 6)
Quarter: 2023Q4

REPORT INFORMATION
  Report Type: Report from Study
  Country: JP (occurrence: JP)
  Receive Date: 20210507
  Receipt Date: 20231121
  Transmission Date: 20240110
  Serious: Yes (Hospitalization)
  Sender: FDA-Public Use
  Company Number: JP-ABBVIE-19K-087-2874526-00

PATIENT
  Sex: Male

DRUGS (6)
  1. CARBIDOPA\LEVODOPA [Suspect]
     Active Substance: CARBIDOPA\LEVODOPA
     Indication: Parkinson^s disease
     Dosage: MD: 7 ML, CD: 3.5 ML/HR ? 16 HRS, ED: 1 ML/UNIT ? 2
     Route: 050
     Dates: start: 20190131, end: 20190206
  2. CARBIDOPA\LEVODOPA [Suspect]
     Active Substance: CARBIDOPA\LEVODOPA
     Dosage: MD: 7 ML, CD: 3.5 ML/HR ? 16 HRS, ED: 1 ML/UNIT ? 2
     Route: 050
     Dates: start: 20190206
  3. BENSERAZIDE HYDROCHLORIDE\LEVODOPA [Concomitant]
     Active Substance: BENSERAZIDE HYDROCHLORIDE\LEVODOPA
     Indication: Parkinson^s disease
     Dosage: 100 MILLIGRAM
     Route: 048
     Dates: start: 20190206
  4. Shakuyakukanzoto extract [Concomitant]
     Indication: Pain in extremity
     Dosage: 2500 MILLIGRAM
     Route: 048
  5. SOLIFENACIN SUCCINATE [Concomitant]
     Active Substance: SOLIFENACIN SUCCINATE
     Indication: Hypertonic bladder
     Dosage: 5 MILLIGRAM
     Route: 048
  6. ROTIGOTINE [Concomitant]
     Active Substance: ROTIGOTINE
     Indication: Parkinson^s disease
     Dosage: 27 MILLIGRAM

REACTIONS (9)
  - Malaise [Unknown]
  - Dysaesthesia [Unknown]
  - Malaise [Recovered/Resolved]
  - Malaise [Recovered/Resolved]
  - Drug ineffective [Unknown]
  - Hallucination [Unknown]
  - Stoma site pain [Unknown]
  - Device occlusion [Recovered/Resolved]
  - Fall [Unknown]

NARRATIVE: CASE EVENT DATE: 20190101
